FAERS Safety Report 13448486 (Version 1)
Quarter: 2017Q2

REPORT INFORMATION
  Report Type: Spontaneous
  Country: DE (occurrence: DE)
  Receive Date: 20170417
  Receipt Date: 20170417
  Transmission Date: 20170830
  Serious: Yes (Other)
  Sender: FDA-Public Use
  Company Number: DE-JNJFOC-20170407170

PATIENT
  Sex: Male

DRUGS (1)
  1. DARZALEX [Suspect]
     Active Substance: DARATUMUMAB
     Indication: AMYLOIDOSIS
     Route: 042

REACTIONS (3)
  - Product use in unapproved indication [Unknown]
  - Ascites [Unknown]
  - Off label use [Unknown]
